FAERS Safety Report 8955070 (Version 1)
Quarter: 2012Q4

REPORT INFORMATION
  Report Type: Spontaneous
  Country: CN (occurrence: None)
  Receive Date: 20121130
  Receipt Date: 20121130
  Transmission Date: 20130627
  Serious: Yes (Hospitalization)
  Sender: FDA-Public Use
  Company Number: CLOZ20120021

PATIENT
  Age: 33 Year
  Sex: Male

DRUGS (3)
  1. CLONAZEPAM [Suspect]
     Route: 048
     Dates: end: 2009
  2. LAMOTRIGINE (LAMOTRIGINE) [Suspect]
     Dates: end: 2009
  3. LITHIUM (LITHIUM) [Concomitant]

REACTIONS (6)
  - Encephalopathy [None]
  - Grand mal convulsion [None]
  - Rales [None]
  - Sinus tachycardia [None]
  - Haemodialysis [None]
  - Toxicity to various agents [None]
